FAERS Safety Report 5900559-9 (Version None)
Quarter: 2008Q3

REPORT INFORMATION
  Report Type: 
  Country: None (occurrence: None)
  Receive Date: 20080926
  Receipt Date: 20080919
  Transmission Date: 20090109
  Serious: Yes (Hospitalization, Disabling)
  Sender: FDA-Public Use
  Company Number: GB-B.I. PHARMACEUTICALS,INC./RIDGEFIELD-2008-UK-01428UK

PATIENT
  Sex: Female

DRUGS (17)
  1. MICARDIS [Suspect]
     Indication: HYPERTENSION
     Dosage: 20MG
     Route: 048
     Dates: start: 20071224
  2. MICARDIS [Suspect]
     Dosage: 40MG
     Route: 048
     Dates: start: 20071231
  3. MICARDIS [Suspect]
     Dosage: 80MG
     Route: 048
     Dates: start: 20080110, end: 20080414
  4. BENDROFLUAZIDE [Suspect]
     Indication: HYPERTENSION
     Dosage: 2.5MG
     Route: 048
     Dates: start: 20080211, end: 20080623
  5. SERETIDE 250 ACUHALER [Concomitant]
     Indication: ASTHMA
     Dosage: 1 OR 2 PUFFS TWICE DAILY
     Route: 055
     Dates: start: 20041016
  6. SALBUTAMOL [Concomitant]
  7. LEVOTHYROXINE SODIUM [Concomitant]
     Indication: HYPOTHYROIDISM
     Dosage: 100MCG
     Route: 048
     Dates: start: 20030101
  8. ASPIRIN [Concomitant]
     Indication: CARDIOVASCULAR EVENT PROPHYLAXIS
     Dosage: 75MG
     Route: 048
     Dates: start: 20080211
  9. AMLODIPINE [Concomitant]
     Indication: HYPERTENSION
     Dosage: 5MG
     Route: 048
     Dates: start: 20080414, end: 20080707
  10. METFORMIN HCL [Concomitant]
     Indication: GLYCOSYLATED HAEMOGLOBIN
     Dosage: 1000MG
     Route: 048
     Dates: start: 20080516, end: 20080522
  11. FLIXONASE NASULES [Concomitant]
     Indication: RHINITIS ALLERGIC
     Dosage: 1 NASULE TWICE DAILY
     Route: 045
     Dates: start: 20080516, end: 20080707
  12. DOXAZOSIN MESYLATE [Concomitant]
     Dosage: 4MG
     Route: 048
     Dates: start: 20080707
  13. NASONEX [Concomitant]
     Indication: RHINITIS ALLERGIC
     Dosage: 2 PUFFS TWICE DAILY
     Route: 045
     Dates: start: 20080707
  14. AMOXICILLIN [Concomitant]
     Indication: LOWER RESPIRATORY TRACT INFECTION
     Dosage: 1500MG
     Dates: start: 20080313, end: 20080320
  15. AUGMENTIN '125' [Concomitant]
     Indication: LOWER RESPIRATORY TRACT INFECTION
     Dosage: 1875MG
     Dates: start: 20080516, end: 20080524
  16. RUSOVASTATIN [Concomitant]
     Indication: BLOOD CHOLESTEROL INCREASED
     Dosage: 20MG
     Route: 048
     Dates: start: 20080110, end: 20080522
  17. RUSOVASTATIN [Concomitant]
     Dosage: 30MG
     Route: 048
     Dates: start: 20080215

REACTIONS (2)
  - RENAL DISORDER [None]
  - RENAL FAILURE [None]
